FAERS Safety Report 17619606 (Version 2)
Quarter: 2020Q2

REPORT INFORMATION
  Report Type: Spontaneous
  Country: US (occurrence: US)
  Receive Date: 20200403
  Receipt Date: 20200421
  Transmission Date: 20200713
  Serious: No
  Sender: FDA-Public Use
  Company Number: US-MTPC-MTDA2020-0048746

PATIENT
  Age: 65 Year
  Sex: Female

DRUGS (2)
  1. RADICAVA [Suspect]
     Active Substance: EDARAVONE
     Indication: AMYOTROPHIC LATERAL SCLEROSIS
     Dosage: 60 MILLIGRAM, QD 5 DAYS ON, OFF ON WEEKEND AND THEN 5 DDAYS ON
     Route: 042
  2. RADICAVA [Suspect]
     Active Substance: EDARAVONE
     Dosage: 60 MG OVER 60 MIN, QD 10 DAYS OUT OF 14 DAY PERIODS FOLLOWED BY A 14 DAY DRUG FREE PERIODS
     Route: 042

REACTIONS (2)
  - Aphasia [Not Recovered/Not Resolved]
  - Inappropriate schedule of product administration [Unknown]

NARRATIVE: CASE EVENT DATE: 2018
